FAERS Safety Report 22400558 (Version 1)
Quarter: 2023Q2

REPORT INFORMATION
  Report Type: Spontaneous
  Country: JP (occurrence: JP)
  Receive Date: 20230602
  Receipt Date: 20230602
  Transmission Date: 20230721
  Serious: Yes (Death, Hospitalization, Other)
  Sender: FDA-Public Use
  Company Number: JP-BAYER-2023A048416

PATIENT
  Age: 67 Year
  Sex: Male
  Weight: 53 kg

DRUGS (7)
  1. STIVARGA [Suspect]
     Active Substance: REGORAFENIB
     Indication: Rectal cancer
     Dosage: 80 MG, 3 WEEKS ON AND 1 WEEK OFF
     Dates: start: 20230210, end: 20230331
  2. STIVARGA [Suspect]
     Active Substance: REGORAFENIB
     Indication: Life support
  3. CANDESARTAN [Concomitant]
     Active Substance: CANDESARTAN
     Indication: Hypertension
     Dosage: DAILY DOSE 4 MG
     Route: 048
  4. LANSOPRAZOLE [Concomitant]
     Active Substance: LANSOPRAZOLE
     Indication: Gastric ulcer
     Dosage: DAILY DOSE 15 MG
     Route: 048
  5. AMLODIPINE [Concomitant]
     Active Substance: AMLODIPINE BESYLATE
     Indication: Hypertension
     Dosage: DAILY DOSE 5 MG
     Route: 048
  6. ZOLPIDEM TARTRATE [Concomitant]
     Active Substance: ZOLPIDEM TARTRATE
     Indication: Insomnia
     Dosage: DAILY DOSE 10 MG
     Route: 048
  7. SHAKUYAKUKANZOTO [Concomitant]
     Active Substance: HERBALS
     Indication: Seizure prophylaxis
     Dosage: UNK, PRN
     Route: 048

REACTIONS (6)
  - Hepatitis fulminant [Fatal]
  - Asthenia [None]
  - Fatigue [None]
  - Decreased appetite [None]
  - Coma hepatic [None]
  - Jaundice [None]

NARRATIVE: CASE EVENT DATE: 20230407
